FAERS Safety Report 11779970 (Version 3)
Quarter: 2015Q4

REPORT INFORMATION
  Report Type: Report from Study
  Country: MX (occurrence: MX)
  Receive Date: 20151125
  Receipt Date: 20151223
  Transmission Date: 20160304
  Serious: Yes (Hospitalization, Other)
  Sender: FDA-Public Use
  Company Number: PHHY2015MX151325

PATIENT
  Age: 15 Year
  Sex: Male
  Weight: 45 kg

DRUGS (4)
  1. RISPERIDONE. [Concomitant]
     Active Substance: RISPERIDONE
     Indication: PRODUCT USED FOR UNKNOWN INDICATION
     Dosage: 0.5 DF, QD (1 MG)
     Route: 065
     Dates: start: 201510
  2. TRILEPTAL [Suspect]
     Active Substance: OXCARBAZEPINE
     Dosage: 600 MG, (3/4)
     Route: 065
     Dates: end: 20151127
  3. TRILEPTAL [Suspect]
     Active Substance: OXCARBAZEPINE
     Indication: FEBRILE CONVULSION
     Dosage: 300 MG, UNK
     Route: 065
  4. TRILEPTAL [Suspect]
     Active Substance: OXCARBAZEPINE
     Dosage: 300 MG, (1.5 DF IN THE MORNING, 2 DF IN THE NIGHT)
     Route: 065
     Dates: start: 201510

REACTIONS (14)
  - Fall [Recovered/Resolved]
  - Secretion discharge [Unknown]
  - Somnolence [Unknown]
  - Meningitis [Unknown]
  - Hypersensitivity [Unknown]
  - Dizziness [Unknown]
  - Head injury [Recovered/Resolved]
  - Seizure [Recovered/Resolved]
  - Wrong technique in product usage process [Not Recovered/Not Resolved]
  - Pyrexia [Recovered/Resolved]
  - Inflammation [Recovered/Resolved]
  - Influenza [Recovered/Resolved]
  - Face injury [Recovered/Resolved]
  - Pharyngitis [Unknown]

NARRATIVE: CASE EVENT DATE: 20151112
